FAERS Safety Report 9421975 (Version 1)
Quarter: 2013Q3

REPORT INFORMATION
  Report Type: Spontaneous
  Country: MX (occurrence: MX)
  Receive Date: 20130726
  Receipt Date: 20130726
  Transmission Date: 20140515
  Serious: Yes (Other)
  Sender: FDA-Public Use
  Company Number: MX-GENZYME-THYM-1003871

PATIENT
  Age: 36 Year
  Sex: Male

DRUGS (1)
  1. THYMOGLOBULINE [Suspect]
     Indication: APLASTIC ANAEMIA
     Dosage: UNK
     Route: 042

REACTIONS (2)
  - Rash generalised [Unknown]
  - Conjunctivitis [Unknown]
